FAERS Safety Report 17825061 (Version 2)
Quarter: 2020Q4

REPORT INFORMATION
  Report Type: Report from Study
  Country: US (occurrence: US)
  Receive Date: 20200526
  Receipt Date: 20201027
  Transmission Date: 20210113
  Serious: Yes (Hospitalization)
  Sender: FDA-Public Use
  Company Number: US-SA-2020SA132596

PATIENT

DRUGS (24)
  1. DICYCLOMINE HCL [Concomitant]
     Active Substance: DICYCLOMINE HYDROCHLORIDE
  2. GLIPIZIDE. [Concomitant]
     Active Substance: GLIPIZIDE
  3. HUMALOG [Concomitant]
     Active Substance: INSULIN LISPRO
  4. JANUMET [Concomitant]
     Active Substance: METFORMIN HYDROCHLORIDE\SITAGLIPTIN PHOSPHATE
  5. MONTELUKAST [Concomitant]
     Active Substance: MONTELUKAST SODIUM
  6. FLUTICASONE. [Concomitant]
     Active Substance: FLUTICASONE
  7. IPRATROPIUM [Concomitant]
     Active Substance: IPRATROPIUM
  8. DUPILUMAB [Suspect]
     Active Substance: DUPILUMAB
     Indication: RHINITIS
     Dosage: 2 DF, 1X
     Route: 058
     Dates: start: 20200507, end: 20200507
  9. DUPILUMAB [Suspect]
     Active Substance: DUPILUMAB
     Dosage: 200 MG, QOW
     Route: 058
     Dates: start: 2020
  10. PREDNISONE. [Concomitant]
     Active Substance: PREDNISONE
  11. BRIMONIDINE [Concomitant]
     Active Substance: BRIMONIDINE TARTRATE
  12. ONE TOUCH [Concomitant]
     Active Substance: DEXTROSE
  13. RANITIDINE. [Concomitant]
     Active Substance: RANITIDINE
  14. DUPILUMAB [Suspect]
     Active Substance: DUPILUMAB
     Indication: ASTHMA
     Dosage: 1 DF, QOW
     Route: 058
     Dates: start: 2020, end: 2020
  15. DUPILUMAB [Suspect]
     Active Substance: DUPILUMAB
     Dosage: 400 MG, 1X
     Route: 058
     Dates: start: 20200518, end: 20200518
  16. ATORVASTATIN [Concomitant]
     Active Substance: ATORVASTATIN
  17. FUROSEMIDE. [Concomitant]
     Active Substance: FUROSEMIDE
  18. LOSARTAN. [Concomitant]
     Active Substance: LOSARTAN
  19. PIOGLITAZONE. [Concomitant]
     Active Substance: PIOGLITAZONE
  20. AZITHROMYCIN ANHYDROUS. [Concomitant]
     Active Substance: AZITHROMYCIN ANHYDROUS
  21. QVAR REDIHALER [Concomitant]
     Active Substance: BECLOMETHASONE DIPROPIONATE
  22. ADVAIR HFA [Concomitant]
     Active Substance: FLUTICASONE PROPIONATE\SALMETEROL XINAFOATE
  23. CETIRIZINE [Concomitant]
     Active Substance: CETIRIZINE HYDROCHLORIDE
  24. ESOMEPRA [Concomitant]
     Active Substance: ESOMEPRAZOLE

REACTIONS (4)
  - Asthma [Recovered/Resolved]
  - Productive cough [Not Recovered/Not Resolved]
  - Dyspnoea [Not Recovered/Not Resolved]
  - Product use in unapproved indication [Unknown]

NARRATIVE: CASE EVENT DATE: 202005
